FAERS Safety Report 8918650 (Version 1)
Quarter: 2012Q4

REPORT INFORMATION
  Report Type: 
  Country: US (occurrence: US)
  Receive Date: 20121120
  Receipt Date: 20121120
  Transmission Date: 20130627
  Serious: Yes (Hospitalization)
  Sender: FDA-Public Use
  Company Number: US-ASTRAZENECA-2012SE21596

PATIENT
  Age: 58 Year
  Sex: Male
  Weight: 133.8 kg

DRUGS (11)
  1. NEXIUM [Suspect]
     Indication: GASTROOESOPHAGEAL REFLUX DISEASE
     Route: 048
  2. NEXIUM [Suspect]
     Indication: HIATUS HERNIA
     Route: 048
  3. NEXIUM [Suspect]
     Indication: GASTROINTESTINAL ULCER
     Route: 048
  4. NEXIUM [Suspect]
     Indication: GASTROOESOPHAGEAL REFLUX DISEASE
     Route: 048
     Dates: start: 2007
  5. NEXIUM [Suspect]
     Indication: HIATUS HERNIA
     Route: 048
     Dates: start: 2007
  6. NEXIUM [Suspect]
     Indication: GASTROINTESTINAL ULCER
     Route: 048
     Dates: start: 2007
  7. POTASSIUM [Concomitant]
  8. SIMVASTATIN [Concomitant]
     Indication: BLOOD CHOLESTEROL ABNORMAL
  9. WALBUTRINE [Concomitant]
  10. VICODINE [Concomitant]
  11. WATER PILL [Concomitant]

REACTIONS (4)
  - Anaemia [Unknown]
  - Insomnia [Unknown]
  - Muscle disorder [Unknown]
  - Off label use [Unknown]
